FAERS Safety Report 9931843 (Version 1)
Quarter: 2014Q1

REPORT INFORMATION
  Report Type: Spontaneous
  Country: US (occurrence: None)
  Receive Date: 20140227
  Receipt Date: 20140227
  Transmission Date: 20141002
  Serious: Yes (Other)
  Sender: FDA-Public Use
  Company Number: None

PATIENT
  Age: 47 Year
  Sex: Female
  Weight: 90.72 kg

DRUGS (2)
  1. CELEXA [Suspect]
     Indication: ANXIETY
     Dosage: 1 PILL ONCE DAILY
     Route: 048
     Dates: start: 20140221, end: 20140225
  2. CELEXA [Suspect]
     Indication: STRESS
     Dosage: 1 PILL ONCE DAILY
     Route: 048
     Dates: start: 20140221, end: 20140225

REACTIONS (4)
  - Nausea [None]
  - Tremor [None]
  - Insomnia [None]
  - Panic attack [None]
